FAERS Safety Report 10396611 (Version 2)
Quarter: 2014Q3

REPORT INFORMATION
  Report Type: Spontaneous
  Country: US (occurrence: US)
  Receive Date: 20140820
  Receipt Date: 20140820
  Transmission Date: 20150326
  Serious: Yes (Hospitalization)
  Sender: FDA-Public Use
  Company Number: US-GLAXOSMITHKLINE-A0798469A

PATIENT
  Sex: Female
  Weight: 108.6 kg

DRUGS (1)
  1. AVANDIA [Suspect]
     Active Substance: ROSIGLITAZONE MALEATE
     Indication: DIABETES MELLITUS
     Route: 048
     Dates: start: 200009, end: 200510

REACTIONS (4)
  - Neuropathy peripheral [Unknown]
  - Diabetes mellitus [Unknown]
  - Injury [Unknown]
  - Cardiac failure congestive [Not Recovered/Not Resolved]
